FAERS Safety Report 25964485 (Version 1)
Quarter: 2025Q4

REPORT INFORMATION
  Report Type: Spontaneous
  Country: CN (occurrence: CN)
  Receive Date: 20251027
  Receipt Date: 20251027
  Transmission Date: 20260118
  Serious: Yes (Hospitalization, Other)
  Sender: GILEAD
  Company Number: CN-SHANGHAI FOSUN KAIROS BIOTECHNOLOGY CO., LTD-FOSUNKAIROS-20251495

PATIENT
  Age: 77 Year
  Sex: Male

DRUGS (3)
  1. YESCARTA [Suspect]
     Active Substance: AXICABTAGENE CILOLEUCEL
     Indication: Diffuse large B-cell lymphoma
     Dosage: 68 MILLILITER, SINGLE
     Route: 042
     Dates: start: 20250810, end: 20250810
  2. FLUDARABINE [Concomitant]
     Active Substance: FLUDARABINE PHOSPHATE
     Indication: Lymphodepletion
     Dosage: 45.3 MILLIGRAM
     Route: 065
     Dates: start: 20250804, end: 20250806
  3. CYCLOPHOSPHAMIDE [Concomitant]
     Active Substance: CYCLOPHOSPHAMIDE
     Indication: Lymphodepletion
     Dosage: 0.453 GRAM
     Route: 065
     Dates: start: 20250804, end: 20250806

REACTIONS (5)
  - Myelosuppression [Not Recovered/Not Resolved]
  - Pneumonia [Not Recovered/Not Resolved]
  - Tremor [Recovering/Resolving]
  - Pyrexia [Recovering/Resolving]
  - Pleural effusion [Not Recovered/Not Resolved]

NARRATIVE: CASE EVENT DATE: 20250811
